FAERS Safety Report 10241833 (Version 1)
Quarter: 2014Q2

REPORT INFORMATION
  Report Type: Spontaneous
  Country: US (occurrence: US)
  Receive Date: 20140617
  Receipt Date: 20140617
  Transmission Date: 20141212
  Serious: Yes (Other)
  Sender: FDA-Public Use
  Company Number: US-GLAXOSMITHKLINE-A1059044A

PATIENT
  Age: 72 Year
  Sex: Female

DRUGS (7)
  1. ADVAIR HFA [Suspect]
     Indication: CHRONIC OBSTRUCTIVE PULMONARY DISEASE
     Route: 055
     Dates: start: 20130930
  2. BABY ASPIRIN [Concomitant]
  3. LEVOTHYROXINE [Concomitant]
  4. LISINOPRIL [Concomitant]
  5. LITHIUM [Concomitant]
  6. CLORAZEPATE [Concomitant]
  7. ZYPREXA [Concomitant]

REACTIONS (3)
  - Malaise [Recovering/Resolving]
  - Confusional state [Recovering/Resolving]
  - Dementia [Unknown]
